FAERS Safety Report 6763464-4 (Version None)
Quarter: 2010Q2

REPORT INFORMATION
  Report Type: 
  Country: None (occurrence: None)
  Receive Date: 20100610
  Receipt Date: 20100607
  Transmission Date: 20101027
  Serious: Yes (Other)
  Sender: FDA-Public Use
  Company Number: US-BAYER-201016379BCC

PATIENT
  Age: 83 Year
  Sex: Female
  Weight: 91 kg

DRUGS (6)
  1. ALEVE (CAPLET) [Suspect]
     Indication: ARTHRALGIA
     Dosage: TOTAL DAILY DOSE: 440 MG  UNIT DOSE: 220 DF
     Route: 048
     Dates: start: 20100606
  2. LIPITOR [Concomitant]
     Route: 065
  3. VITAMIN D [Concomitant]
     Route: 065
  4. VITAMIN E [Concomitant]
     Route: 065
  5. FOLIC ACID [Concomitant]
     Route: 065
  6. EXCEDRIN (MIGRAINE) [Concomitant]
     Dosage: TOTAL DAILY DOSE: 2 DF  UNIT DOSE: 1 DF
     Route: 065
     Dates: start: 20100605

REACTIONS (1)
  - BLOOD URINE PRESENT [None]
